FAERS Safety Report 8572379-0 (Version None)
Quarter: 2012Q3

REPORT INFORMATION
  Report Type: 
  Country: None (occurrence: None)
  Receive Date: 20120806
  Receipt Date: 20120726
  Transmission Date: 20120928
  Serious: Yes (Hospitalization)
  Sender: FDA-Public Use
  Company Number: US-JNJFOC-20120800243

PATIENT
  Sex: Female

DRUGS (3)
  1. REMICADE [Suspect]
     Indication: COLITIS ULCERATIVE
     Route: 042
     Dates: start: 20110801
  2. ALBUTEROL [Concomitant]
     Indication: ASTHMA
     Route: 055
     Dates: start: 19920101
  3. FLOVENT [Concomitant]
     Indication: ASTHMA
     Route: 055
     Dates: start: 19920101

REACTIONS (4)
  - APPENDICECTOMY [None]
  - ABDOMINAL PAIN [None]
  - NERVE COMPRESSION [None]
  - DERMAL CYST [None]
